FAERS Safety Report 8867764 (Version 1)
Quarter: 2012Q4

REPORT INFORMATION
  Report Type: 
  Country: US (occurrence: US)
  Receive Date: 20121026
  Receipt Date: 20121026
  Transmission Date: 20130627
  Serious: No
  Sender: FDA-Public Use
  Company Number: US-AMGEN-USASP2012040653

PATIENT
  Age: 52 Year
  Sex: Female
  Weight: 97.51 kg

DRUGS (5)
  1. ENBREL [Suspect]
     Indication: PRODUCT USED FOR UNKNOWN INDICATION
     Dosage: 50 mg, qwk
  2. METHOTREXATE [Concomitant]
     Dosage: 2.5 mg, UNK
  3. MOBIC [Concomitant]
     Dosage: 7.5 mg, UNK
  4. FOLIC ACID [Concomitant]
  5. HOMATROPINE/ HYDROCODONE [Concomitant]

REACTIONS (1)
  - Alopecia [Unknown]
